FAERS Safety Report 5168137-X (Version None)
Quarter: 2006Q4

REPORT INFORMATION
  Report Type: 
  Country: None (occurrence: None)
  Receive Date: 20061208
  Receipt Date: 20061204
  Transmission Date: 20070319
  Serious: Yes (Other)
  Sender: FDA-Public Use
  Company Number: US-BRISTOL-MYERS SQUIBB COMPANY-13600143

PATIENT
  Sex: Male

DRUGS (2)
  1. COUMADIN [Suspect]
  2. PLAVIX [Suspect]

REACTIONS (1)
  - MYOCARDIAL INFARCTION [None]
